FAERS Safety Report 23546196 (Version 1)
Quarter: 2024Q1

REPORT INFORMATION
  Report Type: Spontaneous
  Country: CA (occurrence: CA)
  Receive Date: 20240220
  Receipt Date: 20240220
  Transmission Date: 20240409
  Serious: Yes (Hospitalization)
  Sender: FDA-Public Use
  Company Number: CA-TEVA-VS-3159292

PATIENT
  Age: 87 Year
  Sex: Male
  Weight: 76 kg

DRUGS (11)
  1. AMIODARONE [Suspect]
     Active Substance: AMIODARONE
     Indication: Cardiovascular insufficiency
     Dosage: DOSE FORM: NOT SPECIFIED
     Route: 048
  2. FIRMAGON [Concomitant]
     Active Substance: DEGARELIX ACETATE
     Dosage: DOSAGE FORM: NOT SPECIFIED
     Route: 065
  3. LASIX [Concomitant]
     Active Substance: FUROSEMIDE
     Dosage: DOSAGE FORM: NOT SPECIFIED
     Route: 065
  4. LIPITOR [Concomitant]
     Active Substance: ATORVASTATIN CALCIUM
     Dosage: DOSAGE FORM: NOT SPECIFIED
     Route: 065
  5. METOPROLOL [Concomitant]
     Active Substance: METOPROLOL
     Route: 065
  6. NITROGLYCERIN [Concomitant]
     Active Substance: NITROGLYCERIN
     Dosage: DOSAGE FORM: NOT SPECIFIED
     Route: 065
  7. RAMIPRIL [Concomitant]
     Active Substance: RAMIPRIL
     Dosage: DOSAGE FORM: NOT SPECIFIED
     Route: 065
  8. VITAMIN B12 [Concomitant]
     Active Substance: CYANOCOBALAMIN
     Dosage: DOSAGE FORM: NOT SPECIFIED
     Route: 065
  9. VITAMIN D [Concomitant]
     Active Substance: VITAMIN D NOS
     Dosage: DOSAGE FORM: NOT SPECIFIED
     Route: 065
  10. ELIQUIS [Concomitant]
     Active Substance: APIXABAN
     Route: 065
  11. EZETIMIBE [Concomitant]
     Active Substance: EZETIMIBE
     Route: 065

REACTIONS (9)
  - Balance disorder [Recovering/Resolving]
  - Dizziness [Recovering/Resolving]
  - Dysarthria [Recovering/Resolving]
  - External counterpulsation [Recovering/Resolving]
  - Fatigue [Recovering/Resolving]
  - Insomnia [Recovering/Resolving]
  - Nausea [Recovering/Resolving]
  - Nystagmus [Recovering/Resolving]
  - Vomiting [Recovering/Resolving]
